FAERS Safety Report 19484569 (Version 1)
Quarter: 2021Q3

REPORT INFORMATION
  Report Type: Spontaneous
  Country: MY (occurrence: MY)
  Receive Date: 20210702
  Receipt Date: 20210702
  Transmission Date: 20211014
  Serious: Yes (Other)
  Sender: FDA-Public Use
  Company Number: MY-TEVA-2021-MY-1928987

PATIENT
  Age: 2 Year
  Sex: Male

DRUGS (1)
  1. STESOLID RECTAL TUBE 5MG [Suspect]
     Active Substance: DIAZEPAM
     Indication: STATUS EPILEPTICUS
     Dosage: 5 MILLIGRAM DAILY;
     Route: 054

REACTIONS (2)
  - Urticaria [Recovering/Resolving]
  - Eye swelling [Recovering/Resolving]
